FAERS Safety Report 8032858-1 (Version None)
Quarter: 2012Q1

REPORT INFORMATION
  Report Type: 
  Country: None (occurrence: None)
  Receive Date: 20120110
  Receipt Date: 20120108
  Transmission Date: 20120608
  Serious: No
  Sender: FDA-Public Use
  Company Number: US-BAYER-2012-002502

PATIENT
  Age: 75 Year
  Sex: Female
  Weight: 75 kg

DRUGS (13)
  1. ACETAMINOPHEN [Concomitant]
  2. ULTRAM [Concomitant]
  3. GNC STINGING NETTLE [Concomitant]
  4. NATURE MADE MULTIVITAMIN [Concomitant]
  5. PROBIOTICS [Concomitant]
  6. VITAMIN C [Concomitant]
  7. ALEVE (CAPLET) [Suspect]
     Indication: ARTHRITIS
     Dosage: UNK
     Route: 048
     Dates: end: 20120107
  8. MAGNESIUM [Concomitant]
  9. NATURES BOUNTY FISH FLAX AND BORAGE [Concomitant]
  10. CITRACAL PETITES [Concomitant]
  11. SYNTHROID [Concomitant]
  12. PEPCID [Concomitant]
  13. POTASSIUM GLUCONATE TAB [Concomitant]

REACTIONS (2)
  - SOMNOLENCE [None]
  - DIZZINESS [None]
